FAERS Safety Report 6712384-X (Version None)
Quarter: 2010Q2

REPORT INFORMATION
  Report Type: 
  Country: None (occurrence: None)
  Receive Date: 20100505
  Receipt Date: 20100419
  Transmission Date: 20101027
  Serious: Yes (Other)
  Sender: FDA-Public Use
  Company Number: FR-ROCHE-700967

PATIENT
  Sex: Male

DRUGS (3)
  1. MYCOPHENOLATE MOFETIL [Suspect]
     Route: 048
     Dates: start: 20061207
  2. CYCLOSPORINE [Suspect]
     Route: 048
     Dates: start: 20081119
  3. CORTANCYL [Suspect]
     Route: 048
     Dates: start: 20070221

REACTIONS (1)
  - COLONIC POLYP [None]
